FAERS Safety Report 13946190 (Version 1)
Quarter: 2017Q3

REPORT INFORMATION
  Report Type: Spontaneous
  Country: US (occurrence: US)
  Receive Date: 20170907
  Receipt Date: 20170907
  Transmission Date: 20171128
  Serious: No
  Sender: FDA-Public Use
  Company Number: US-LUPIN PHARMACEUTICALS INC.-E2B_00007162

PATIENT
  Age: 69 Year
  Sex: Male
  Weight: 104.78 kg

DRUGS (7)
  1. LOVASTATIN TABLETS USP, 40 MG [Interacting]
     Active Substance: LOVASTATIN
     Indication: BLOOD CHOLESTEROL INCREASED
     Dosage: 40 MG,QD,
     Route: 048
  2. AMLODIPINE BESYLATE TABLETS USP, 10 MG [Suspect]
     Active Substance: AMLODIPINE BESYLATE
     Indication: HYPERTENSION
     Dosage: 10 MG,QD,
     Route: 048
  3. LOVASTATIN TABLETS USP, 40 MG [Interacting]
     Active Substance: LOVASTATIN
     Dosage: 40 MG,QD,
     Route: 048
  4. BYSTOLIC [Concomitant]
     Active Substance: NEBIVOLOL HYDROCHLORIDE
     Indication: HYPERTENSION
     Dosage: 5 MG,QD,
     Route: 048
  5. LOSARTAN. [Concomitant]
     Active Substance: LOSARTAN
     Indication: HYPERTENSION
     Dosage: 100 MG,QD,
     Route: 048
  6. AMLODIPINE BESYLATE TABLETS USP, 10 MG [Interacting]
     Active Substance: AMLODIPINE BESYLATE
     Dosage: 10 MG,QD,
     Route: 048
  7. VIAGRA [Interacting]
     Active Substance: SILDENAFIL CITRATE
     Indication: ERECTILE DYSFUNCTION
     Dosage: 100 MG,PRN,
     Route: 048

REACTIONS (5)
  - Blood pressure increased [None]
  - Drug interaction [Unknown]
  - Therapy cessation [None]
  - Erectile dysfunction [Not Recovered/Not Resolved]
  - Drug ineffective [None]

NARRATIVE: CASE EVENT DATE: 201606
